FAERS Safety Report 9219493 (Version 2)
Quarter: 2013Q2

REPORT INFORMATION
  Report Type: Spontaneous
  Country: US (occurrence: US)
  Receive Date: 20130409
  Receipt Date: 20130419
  Transmission Date: 20140414
  Serious: No
  Sender: FDA-Public Use
  Company Number: US-PFIZER INC-2013109948

PATIENT
  Age: 65 Year
  Sex: Female

DRUGS (5)
  1. VENLAFAXINE HCL [Suspect]
     Dosage: UNK
  2. EFEXOR XR [Concomitant]
     Dosage: 75 MG, 2X/DAY
  3. TOPAMAX [Concomitant]
     Dosage: 25 MG, (3 AT BED)
  4. ZOLPIDEM [Concomitant]
     Dosage: 10 MG, (AT BED)
  5. XANAX [Concomitant]
     Dosage: 0.25 MG, AS NEEDED (1-2)

REACTIONS (2)
  - Drug ineffective [Unknown]
  - Depression [Unknown]
